FAERS Safety Report 19454085 (Version 2)
Quarter: 2021Q2

REPORT INFORMATION
  Report Type: Spontaneous
  Country: IT (occurrence: IT)
  Receive Date: 20210623
  Receipt Date: 20210629
  Transmission Date: 20210717
  Serious: Yes (Other)
  Sender: FDA-Public Use
  Company Number: IT-PFIZER INC-2021681863

PATIENT
  Age: 27 Year
  Sex: Female
  Weight: 62 kg

DRUGS (4)
  1. IFOSFAMIDE. [Concomitant]
     Active Substance: IFOSFAMIDE
     Indication: EWING^S SARCOMA
     Dosage: 3000 MG
     Route: 042
     Dates: start: 20210413, end: 20210415
  2. DOXORUBICIN HYDROCHLORIDE. [Concomitant]
     Active Substance: DOXORUBICIN HYDROCHLORIDE
     Indication: EWING^S SARCOMA
     Dosage: 25 MG
     Route: 042
     Dates: start: 20210413, end: 20210415
  3. VINCRISTINE [Concomitant]
     Active Substance: VINCRISTINE
     Indication: EWING^S SARCOMA
     Dosage: 2 MG
     Route: 042
     Dates: start: 20210413, end: 20210413
  4. NIVESTIM [Suspect]
     Active Substance: FILGRASTIM
     Indication: COLONY STIMULATING FACTOR THERAPY
     Dosage: 30 MIU, 1X/DAY
     Route: 058
     Dates: start: 20210417, end: 20210422

REACTIONS (2)
  - Neutropenia [Recovered/Resolved]
  - Drug ineffective [Recovered/Resolved]

NARRATIVE: CASE EVENT DATE: 20210423
